FAERS Safety Report 7086059-4 (Version None)
Quarter: 2010Q4

REPORT INFORMATION
  Report Type: 
  Country: None (occurrence: None)
  Receive Date: 20101105
  Receipt Date: 20101103
  Transmission Date: 20110411
  Serious: Yes (Hospitalization)
  Sender: FDA-Public Use
  Company Number: A0890543A

PATIENT
  Age: 74 Year
  Sex: Female

DRUGS (13)
  1. ADVAIR DISKUS 100/50 [Suspect]
     Indication: ASTHMA
     Dosage: 1PUFF PER DAY
     Route: 055
     Dates: start: 20080101
  2. SPIRIVA [Concomitant]
  3. DIOVAN [Concomitant]
  4. PLAVIX [Concomitant]
  5. METFORMIN HCL [Concomitant]
  6. GLYBURIDE [Concomitant]
  7. INSULIN NOVOLIN [Concomitant]
  8. FISH OIL [Concomitant]
  9. PREDNISONE [Concomitant]
  10. VENTOLIN HFA [Concomitant]
  11. COREG [Concomitant]
  12. LASIX [Concomitant]
  13. SYNTHROID [Concomitant]

REACTIONS (4)
  - CEREBROVASCULAR ACCIDENT [None]
  - HEMIPARESIS [None]
  - NERVOUS SYSTEM DISORDER [None]
  - WALKING AID USER [None]
